FAERS Safety Report 5133684-3 (Version None)
Quarter: 2006Q4

REPORT INFORMATION
  Report Type: 
  Country: None (occurrence: None)
  Receive Date: 20061024
  Receipt Date: 20060711
  Transmission Date: 20070319
  Serious: No
  Sender: FDA-Public Use
  Company Number: US-AMGEN-KDL185785

PATIENT
  Age: 51 Year
  Sex: Male

DRUGS (15)
  1. SENSIPAR [Suspect]
     Indication: HYPERPARATHYROIDISM SECONDARY
     Dates: start: 20060502, end: 20060701
  2. EPOGEN [Suspect]
     Indication: RENAL FAILURE CHRONIC
  3. ALLOPURINOL [Concomitant]
     Route: 048
  4. RENAGEL [Concomitant]
  5. SANDIMMUNE [Concomitant]
     Route: 048
  6. LIPITOR [Concomitant]
     Route: 048
  7. COREG [Concomitant]
     Route: 048
  8. ZESTRIL [Concomitant]
     Route: 048
  9. PREDNISONE TAB [Concomitant]
     Route: 048
  10. ACIPHEX [Concomitant]
     Route: 048
  11. PLAVIX [Concomitant]
     Route: 048
  12. IMDUR [Concomitant]
     Route: 048
  13. ZEMPLAR [Concomitant]
     Route: 042
  14. FERRLECIT FOR INJECTION [Concomitant]
     Route: 042
  15. HEPARIN [Concomitant]
     Route: 042

REACTIONS (1)
  - TACHYCARDIA [None]
